FAERS Safety Report 7918698-X (Version None)
Quarter: 2011Q4

REPORT INFORMATION
  Report Type: 
  Country: None (occurrence: None)
  Receive Date: 20111116
  Receipt Date: 20111111
  Transmission Date: 20120403
  Serious: Yes (Death)
  Sender: FDA-Public Use
  Company Number: CH-PFIZER INC-2011269038

PATIENT
  Age: 71 Year
  Sex: Male

DRUGS (1)
  1. PF-02341066 [Suspect]
     Indication: NON-SMALL CELL LUNG CANCER
     Dosage: UNK
     Dates: start: 20110913

REACTIONS (2)
  - NON-SMALL CELL LUNG CANCER [None]
  - DISEASE PROGRESSION [None]
